FAERS Safety Report 7918692-9 (Version None)
Quarter: 2011Q4

REPORT INFORMATION
  Report Type: 
  Country: None (occurrence: None)
  Receive Date: 20111116
  Receipt Date: 20111103
  Transmission Date: 20120403
  Serious: Yes (Hospitalization)
  Sender: FDA-Public Use
  Company Number: BE-PFIZER INC-BEWYE965311AUG04

PATIENT
  Age: 69 Year
  Sex: Male
  Weight: 83.5 kg

DRUGS (12)
  1. GEMTUZUMAB OZOGAMICIN [Suspect]
     Dosage: 6 MG, 1X/DAY
     Route: 042
     Dates: start: 20040615, end: 20040615
  2. CYTARABINE [Suspect]
     Indication: ACUTE MYELOID LEUKAEMIA
     Dosage: 200 MG, 1X/DAY
     Route: 042
     Dates: start: 20040507, end: 20040513
  3. ETOPOSIDE [Suspect]
     Dosage: 200 MG, 1X/DAY
     Route: 042
     Dates: start: 20040616, end: 20040618
  4. GEMTUZUMAB OZOGAMICIN [Suspect]
     Indication: ACUTE MYELOID LEUKAEMIA
     Dosage: 12 MG, 1X/DAY
     Route: 042
     Dates: start: 20040329, end: 20040414
  5. GEMTUZUMAB OZOGAMICIN [Suspect]
     Dosage: UNK
  6. CYTARABINE [Suspect]
     Dosage: 200 MG, 1X/DAY
     Route: 042
     Dates: start: 20040616, end: 20040621
  7. IDARUBICIN HCL [Suspect]
     Indication: ACUTE MYELOID LEUKAEMIA
     Dosage: 16 MG, ALTERNATE DAY
     Route: 042
     Dates: start: 20040616, end: 20040620
  8. CIPROFLOXACIN [Concomitant]
     Dosage: UNK
     Route: 065
     Dates: start: 20040618, end: 20040630
  9. NEUPOGEN [Concomitant]
     Dosage: UNK
     Route: 065
     Dates: start: 20040622, end: 20040710
  10. ETOPOSIDE [Suspect]
     Indication: ACUTE MYELOID LEUKAEMIA
     Dosage: 200 MG, 1X/DAY
     Route: 042
     Dates: start: 20040507, end: 20040509
  11. FLUCONAZOLE [Concomitant]
     Dosage: UNK
     Route: 065
     Dates: start: 20040618, end: 20040707
  12. MITOXANTRONE [Suspect]
     Indication: ACUTE MYELOID LEUKAEMIA
     Dosage: 14 MG, ALTERNATE DAY
     Route: 042
     Dates: start: 20040507, end: 20040511

REACTIONS (9)
  - BRONCHOPULMONARY ASPERGILLOSIS [None]
  - STAPHYLOCOCCAL INFECTION [None]
  - HAEMOGLOBIN DECREASED [None]
  - RED BLOOD CELL COUNT DECREASED [None]
  - NEUTROPENIA [None]
  - WHITE BLOOD CELL COUNT DECREASED [None]
  - HAEMATOCRIT DECREASED [None]
  - DEVICE RELATED INFECTION [None]
  - PLATELET COUNT DECREASED [None]
